FAERS Safety Report 10182784 (Version 2)
Quarter: 2014Q2

REPORT INFORMATION
  Report Type: Spontaneous
  Country: US (occurrence: US)
  Receive Date: 20140520
  Receipt Date: 20140529
  Transmission Date: 20141212
  Serious: Yes (Hospitalization)
  Sender: FDA-Public Use
  Company Number: US-009507513-1405USA008362

PATIENT
  Age: 79 Year
  Sex: Male

DRUGS (6)
  1. JANUVIA [Suspect]
     Indication: TYPE 2 DIABETES MELLITUS
     Dosage: 50 MG, QD
     Route: 048
     Dates: start: 201402
  2. GLIMEPIRIDE [Concomitant]
  3. FLOMAX (MORNIFLUMATE) [Concomitant]
  4. PROSCAR [Concomitant]
  5. FENOFIBRATE [Concomitant]
  6. OXYBUTYNIN [Concomitant]

REACTIONS (3)
  - Hypertonic bladder [Not Recovered/Not Resolved]
  - Anxiety [Not Recovered/Not Resolved]
  - Pollakiuria [Not Recovered/Not Resolved]
